FAERS Safety Report 22242573 (Version 1)
Quarter: 2023Q2

REPORT INFORMATION
  Report Type: Spontaneous
  Country: US (occurrence: None)
  Receive Date: 20230421
  Receipt Date: 20230421
  Transmission Date: 20230722
  Serious: Yes (Other)
  Sender: FDA-Public Use
  Company Number: None

PATIENT
  Age: 57 Year
  Sex: Female
  Weight: 60.75 kg

DRUGS (8)
  1. LEVOTHYROXINE [Suspect]
     Active Substance: LEVOTHYROXINE
     Indication: Hypothyroidism
     Route: 048
  2. SYNTHROID [Concomitant]
     Active Substance: LEVOTHYROXINE SODIUM
  3. ESTROGENS [Concomitant]
     Active Substance: ESTROGENS
  4. PROGESTERONE [Concomitant]
     Active Substance: PROGESTERONE
  5. Novalog   Insulin [Concomitant]
  6. Glargine Insulin [Concomitant]
  7. Dexcom G6 [Concomitant]
  8. CALCIUM CARBONATE\ERGOCALCIFEROL\RETINOL [Concomitant]
     Active Substance: CALCIUM CARBONATE\ERGOCALCIFEROL\RETINOL

REACTIONS (3)
  - Product substitution issue [None]
  - Blood thyroid stimulating hormone abnormal [None]
  - Thyroxine free abnormal [None]

NARRATIVE: CASE EVENT DATE: 20100101
